FAERS Safety Report 8102771-X (Version None)
Quarter: 2012Q1

REPORT INFORMATION
  Report Type: 
  Country: None (occurrence: None)
  Receive Date: 20120201
  Receipt Date: 20120126
  Transmission Date: 20120608
  Serious: Yes (Hospitalization, Other)
  Sender: FDA-Public Use
  Company Number: US-PFIZER INC-2010006450

PATIENT
  Sex: Male

DRUGS (2)
  1. CHANTIX [Suspect]
     Indication: SMOKING CESSATION THERAPY
     Dosage: 2 MG, PER DAY
     Dates: start: 20071009, end: 20071105
  2. CELEBREX [Concomitant]
     Dosage: 200 MG, UNK
     Dates: start: 20070906

REACTIONS (5)
  - INTENTIONAL OVERDOSE [None]
  - SUICIDE ATTEMPT [None]
  - PANIC ATTACK [None]
  - FEAR [None]
  - DEPRESSION [None]
